FAERS Safety Report 19602320 (Version 1)
Quarter: 2021Q3

REPORT INFORMATION
  Report Type: Spontaneous
  Country: US (occurrence: US)
  Receive Date: 20210723
  Receipt Date: 20210723
  Transmission Date: 20211014
  Serious: No
  Sender: FDA-Public Use
  Company Number: US-BAYER-2021-180838

PATIENT
  Age: 73 Year
  Sex: Male

DRUGS (4)
  1. CLARITIN?D 12 HOUR [Suspect]
     Active Substance: LORATADINE\PSEUDOEPHEDRINE SULFATE
     Indication: HYPERSENSITIVITY
  2. CLARITIN?D 12 HOUR [Suspect]
     Active Substance: LORATADINE\PSEUDOEPHEDRINE SULFATE
     Indication: NASOPHARYNGITIS
  3. MELATONIN [Concomitant]
     Active Substance: MELATONIN
     Dosage: UNK
  4. CLARITIN?D 12 HOUR [Suspect]
     Active Substance: LORATADINE\PSEUDOEPHEDRINE SULFATE
     Indication: CHRONIC SINUSITIS
     Dosage: 1 DF
     Route: 048
     Dates: start: 20210720, end: 20210720

REACTIONS (2)
  - Product use in unapproved indication [None]
  - Insomnia [Recovered/Resolved with Sequelae]

NARRATIVE: CASE EVENT DATE: 20210720
